FAERS Safety Report 20354937 (Version 1)
Quarter: 2022Q1

REPORT INFORMATION
  Report Type: Spontaneous
  Country: US (occurrence: US)
  Receive Date: 20220120
  Receipt Date: 20220120
  Transmission Date: 20220423
  Serious: No
  Sender: FDA-Public Use
  Company Number: ENDG21-02517

PATIENT
  Age: 50 Year
  Sex: Female

DRUGS (1)
  1. PERCOCET [Suspect]
     Active Substance: ACETAMINOPHEN\OXYCODONE HYDROCHLORIDE
     Indication: Product used for unknown indication
     Dosage: 10 MG, TID
     Route: 065

REACTIONS (5)
  - Joint swelling [Unknown]
  - Peripheral swelling [Unknown]
  - Pain [Unknown]
  - Insomnia [Unknown]
  - Psychomotor hyperactivity [Unknown]
